FAERS Safety Report 6220888-1 (Version None)
Quarter: 2009Q2

REPORT INFORMATION
  Report Type: 
  Country: None (occurrence: None)
  Receive Date: 20090610
  Receipt Date: 20090529
  Transmission Date: 20091009
  Serious: Yes (Hospitalization)
  Sender: FDA-Public Use
  Company Number: BR-PFIZER INC-2009220726

PATIENT
  Age: 39 Year

DRUGS (3)
  1. CHAMPIX [Suspect]
     Indication: TOBACCO USER
     Dosage: 1 MG, 2X/DAY
     Dates: start: 20090423
  2. DIPIRONE [Concomitant]
     Dosage: UNK
     Dates: start: 20090501
  3. CODEINE PHOSPHATE/PARACETAMOL [Concomitant]
     Dosage: UNK
     Dates: start: 20090501

REACTIONS (3)
  - BLADDER OPERATION [None]
  - DIZZINESS [None]
  - NAUSEA [None]
